FAERS Safety Report 9738908 (Version 2)
Quarter: 2013Q4

REPORT INFORMATION
  Report Type: Spontaneous
  Country: JP (occurrence: JP)
  Receive Date: 20131209
  Receipt Date: 20131230
  Transmission Date: 20140711
  Serious: Yes (Death, Hospitalization)
  Sender: FDA-Public Use
  Company Number: JP-JNJFOC-20131202203

PATIENT
  Age: 66 Year
  Sex: Male

DRUGS (10)
  1. XARELTO [Suspect]
     Indication: THROMBOSIS PROPHYLAXIS
     Route: 048
     Dates: start: 20130914, end: 20131114
  2. BAYASPIRIN [Concomitant]
     Route: 048
     Dates: end: 20130913
  3. NORVASC [Concomitant]
     Indication: HYPERTENSION
     Route: 048
  4. SELBEX [Concomitant]
     Indication: GASTRITIS PROPHYLAXIS
     Route: 048
  5. ZYLORIC [Concomitant]
     Indication: HYPERURICAEMIA
     Route: 048
  6. OLMETEC [Concomitant]
     Indication: HYPERTENSION
     Route: 048
     Dates: end: 20130318
  7. LANIRAPID [Concomitant]
     Indication: ARRHYTHMIA PROPHYLAXIS
     Route: 048
  8. SUNRYTHM [Concomitant]
     Indication: ARRHYTHMIA PROPHYLAXIS
     Route: 048
  9. METOPROLOL TARTRATE [Concomitant]
     Indication: ARRHYTHMIA PROPHYLAXIS
     Route: 048
     Dates: start: 20130319
  10. METOPROLOL TARTRATE [Concomitant]
     Indication: HYPERTENSION
     Route: 048
     Dates: start: 20130319

REACTIONS (3)
  - Cerebral infarction [Fatal]
  - Basilar artery occlusion [Fatal]
  - Cerebral infarction [Unknown]
